FAERS Safety Report 24893502 (Version 1)
Quarter: 2025Q1

REPORT INFORMATION
  Report Type: Spontaneous
  Country: AT (occurrence: AT)
  Receive Date: 20250128
  Receipt Date: 20250128
  Transmission Date: 20250409
  Serious: Yes (Other)
  Sender: BRISTOL-MYERS SQUIBB COMPANY
  Company Number: AT-JNJFOC-20241260166

PATIENT
  Age: 57 Year
  Sex: Male

DRUGS (18)
  1. POMALIDOMIDE [Suspect]
     Active Substance: POMALIDOMIDE
     Indication: Product used for unknown indication
     Dates: start: 202309
  2. POMALIDOMIDE [Suspect]
     Active Substance: POMALIDOMIDE
     Dates: start: 202310
  3. POMALIDOMIDE [Suspect]
     Active Substance: POMALIDOMIDE
     Dates: start: 202311
  4. DARATUMUMAB [Suspect]
     Active Substance: DARATUMUMAB
     Indication: Amyloidosis
     Dates: start: 202309
  5. DARATUMUMAB [Suspect]
     Active Substance: DARATUMUMAB
     Dates: start: 202310
  6. DARATUMUMAB [Suspect]
     Active Substance: DARATUMUMAB
     Dates: start: 202311
  7. DARATUMUMAB [Suspect]
     Active Substance: DARATUMUMAB
     Dates: start: 202312
  8. DARATUMUMAB [Suspect]
     Active Substance: DARATUMUMAB
     Dates: start: 202401
  9. DARATUMUMAB [Suspect]
     Active Substance: DARATUMUMAB
     Dates: start: 202402
  10. DEXAMETHASONE [Suspect]
     Active Substance: DEXAMETHASONE
     Indication: Product used for unknown indication
     Dates: start: 202309
  11. DEXAMETHASONE [Suspect]
     Active Substance: DEXAMETHASONE
     Dates: start: 202310
  12. DEXAMETHASONE [Suspect]
     Active Substance: DEXAMETHASONE
     Dates: start: 202311
  13. CARFILZOMIB [Suspect]
     Active Substance: CARFILZOMIB
     Indication: Product used for unknown indication
     Dates: start: 202312
  14. CARFILZOMIB [Suspect]
     Active Substance: CARFILZOMIB
     Dates: start: 202401
  15. CARFILZOMIB [Suspect]
     Active Substance: CARFILZOMIB
     Dates: start: 202402
  16. CYCLOPHOSPHAMIDE [Suspect]
     Active Substance: CYCLOPHOSPHAMIDE
     Indication: Product used for unknown indication
     Dates: start: 202312
  17. CYCLOPHOSPHAMIDE [Suspect]
     Active Substance: CYCLOPHOSPHAMIDE
     Dates: start: 202401
  18. CYCLOPHOSPHAMIDE [Suspect]
     Active Substance: CYCLOPHOSPHAMIDE
     Dates: start: 202402

REACTIONS (4)
  - Amyloidosis [Unknown]
  - Quadriplegia [Unknown]
  - General physical health deterioration [Unknown]
  - Hypertension [Unknown]
